FAERS Safety Report 25802469 (Version 1)
Quarter: 2025Q3

REPORT INFORMATION
  Report Type: Spontaneous
  Country: US (occurrence: None)
  Receive Date: 20250913
  Receipt Date: 20250913
  Transmission Date: 20251021
  Serious: Yes (Other)
  Sender: FDA-CTU
  Company Number: None

PATIENT
  Age: 69 Year
  Sex: Female
  Weight: 60.75 kg

DRUGS (12)
  1. RECLAST [Suspect]
     Active Substance: ZOLEDRONIC ACID
     Indication: Osteoporosis
  2. PROPRANOLOL [Concomitant]
     Active Substance: PROPRANOLOL HYDROCHLORIDE
  3. GABAPENTIN [Concomitant]
     Active Substance: GABAPENTIN
  4. CYMBALTA [Concomitant]
     Active Substance: DULOXETINE HYDROCHLORIDE
  5. EPIPEN [Concomitant]
     Active Substance: EPINEPHRINE
  6. LATANOPROST [Concomitant]
     Active Substance: LATANOPROST
  7. Florcet [Concomitant]
  8. ATORVASTATIN [Concomitant]
     Active Substance: ATORVASTATIN
  9. citracal slow-release 1200 [Concomitant]
  10. VITAMIN D NOS [Concomitant]
     Active Substance: CHOLECALCIFEROL\ERGOCALCIFEROL
  11. Store Brand Allergy [Concomitant]
  12. VITAMIN C [Concomitant]
     Active Substance: ASCORBIC ACID

REACTIONS (13)
  - Infusion related reaction [None]
  - Nausea [None]
  - Diarrhoea [None]
  - Retching [None]
  - Vomiting [None]
  - Bone pain [None]
  - Loss of consciousness [None]
  - Asthenia [None]
  - Asthenia [None]
  - Bedridden [None]
  - Hypophagia [None]
  - Hallucinations, mixed [None]
  - Influenza like illness [None]

NARRATIVE: CASE EVENT DATE: 20250616
